FAERS Safety Report 5682242-0 (Version None)
Quarter: 2008Q1

REPORT INFORMATION
  Report Type: 
  Country: None (occurrence: None)
  Receive Date: 20080325
  Receipt Date: 20080317
  Transmission Date: 20080703
  Serious: Yes (Hospitalization)
  Sender: FDA-Public Use
  Company Number: 6041546

PATIENT
  Age: 65 Year
  Sex: Male

DRUGS (2)
  1. BISOPROLOL FUMARATE [Suspect]
     Indication: CARDIAC FAILURE
     Dosage: 5 MG (5 MG,1 IN 1 D)
     Route: 048
     Dates: start: 20071121, end: 20071127
  2. SPIRONOLACTONE [Suspect]
     Indication: CARDIAC FAILURE
     Dosage: 25 MG (25 MG,1 IN 1 D)
     Route: 048
     Dates: start: 20071121, end: 20071121

REACTIONS (4)
  - CARDIOGENIC SHOCK [None]
  - DRUG INTERACTION [None]
  - HYPERKALAEMIA [None]
  - NODAL RHYTHM [None]
